FAERS Safety Report 23141230 (Version 2)
Quarter: 2024Q1

REPORT INFORMATION
  Report Type: Spontaneous
  Country: US (occurrence: None)
  Receive Date: 20231103
  Receipt Date: 20240103
  Transmission Date: 20240410
  Serious: No
  Sender: FDA-Public Use
  Company Number: 2023A247830

PATIENT
  Sex: Female

DRUGS (1)
  1. SYMBICORT [Suspect]
     Active Substance: BUDESONIDE\FORMOTEROL FUMARATE DIHYDRATE
     Indication: Cough
     Dosage: 160 UG, UNKNOWN UNKNOWN
     Route: 055

REACTIONS (4)
  - Middle insomnia [Unknown]
  - Product use issue [Unknown]
  - Product dose omission issue [Not Recovered/Not Resolved]
  - Device delivery system issue [Unknown]
